FAERS Safety Report 4486632-3 (Version None)
Quarter: 2004Q4

REPORT INFORMATION
  Report Type: 
  Country: None (occurrence: None)
  Receive Date: 20041027
  Receipt Date: 20041008
  Transmission Date: 20050328
  Serious: Yes (Hospitalization)
  Sender: FDA-Public Use
  Company Number: PHHO2004US14420

PATIENT
  Age: 62 Year
  Sex: Male
  Weight: 90 kg

DRUGS (4)
  1. GLEEVEC [Suspect]
     Indication: PULMONARY FIBROSIS
     Dosage: 600 MG, QD
     Route: 048
     Dates: start: 20040413, end: 20040930
  2. AMOXICILLIN [Concomitant]
  3. ZOLOFT [Concomitant]
     Indication: DEPRESSION
     Dosage: 100 MG, UNK
     Dates: start: 20040820
  4. ASPIRIN [Concomitant]
     Indication: CORONARY ARTERY DISEASE
     Dosage: 325 UNK, UNK

REACTIONS (9)
  - ABDOMINAL DISTENSION [None]
  - ALPHA 1 FOETOPROTEIN INCREASED [None]
  - ASCITES [None]
  - DIARRHOEA [None]
  - DYSPNOEA [None]
  - HEPATIC ENZYME INCREASED [None]
  - HEPATIC MASS [None]
  - HEPATIC NEOPLASM MALIGNANT [None]
  - PARACENTESIS [None]
